FAERS Safety Report 7571685-6 (Version None)
Quarter: 2011Q2

REPORT INFORMATION
  Report Type: 
  Country: None (occurrence: None)
  Receive Date: 20110616
  Receipt Date: 20110603
  Transmission Date: 20111010
  Serious: Yes (Hospitalization)
  Sender: FDA-Public Use
  Company Number: US-145182

PATIENT
  Age: 12 Year
  Sex: Female
  Weight: 45.2 kg

DRUGS (1)
  1. WINRHO SDF LIQUID [Suspect]
     Indication: IDIOPATHIC THROMBOCYTOPENIC PURPURA
     Dosage: (3490 UG INTRAVENOUS (NOT OTHERWISE SPECIFIED)
     Route: 042
     Dates: start: 20110211, end: 20110211

REACTIONS (11)
  - BLOOD BILIRUBIN INCREASED [None]
  - BLOOD LACTATE DEHYDROGENASE INCREASED [None]
  - ANAEMIA [None]
  - HAEMOGLOBIN DECREASED [None]
  - ALANINE AMINOTRANSFERASE INCREASED [None]
  - HAEMOLYSIS [None]
  - HAEMATURIA [None]
  - ASPARTATE AMINOTRANSFERASE INCREASED [None]
  - ASTHENIA [None]
  - PROTEINURIA [None]
  - OVERDOSE [None]
